FAERS Safety Report 13766493 (Version 1)
Quarter: 2017Q3

REPORT INFORMATION
  Report Type: Spontaneous
  Country: GB (occurrence: GB)
  Receive Date: 20170719
  Receipt Date: 20170719
  Transmission Date: 20171127
  Serious: Yes (Hospitalization)
  Sender: FDA-Public Use
  Company Number: GB-ROCHE-1964461

PATIENT
  Age: 11 Year
  Sex: Male
  Weight: 77.7 kg

DRUGS (5)
  1. MYCOPHENOLATE MOFETIL. [Concomitant]
     Active Substance: MYCOPHENOLATE MOFETIL
     Indication: NEPHROTIC SYNDROME
     Route: 065
     Dates: start: 201606, end: 201701
  2. OMEPRAZOLE SODIUM [Concomitant]
     Active Substance: OMEPRAZOLE SODIUM
     Route: 065
     Dates: start: 2015
  3. PREDNISOLONE. [Concomitant]
     Active Substance: PREDNISOLONE
     Indication: NEPHROTIC SYNDROME
     Route: 065
     Dates: start: 2015
  4. PROGRAF [Concomitant]
     Active Substance: TACROLIMUS\TACROLIMUS ANHYDROUS
     Indication: NEPHROTIC SYNDROME
     Route: 065
     Dates: start: 201701
  5. RITUXIMAB. [Suspect]
     Active Substance: RITUXIMAB
     Indication: NEPHROTIC SYNDROME
     Dosage: 50MG/HOUR INCREASING BY 50MG/HOUR EVERY 30MINS UNTIL 200MG/HOUR?1000MG IN 250ML, NACL USUAL CONCENTR
     Route: 042
     Dates: start: 20170619, end: 20170619

REACTIONS (5)
  - Generalised tonic-clonic seizure [Recovered/Resolved]
  - Medication error [Unknown]
  - Headache [Recovered/Resolved]
  - Hypertensive encephalopathy [Recovered/Resolved with Sequelae]
  - Abnormal behaviour [Recovered/Resolved]

NARRATIVE: CASE EVENT DATE: 20170619
